FAERS Safety Report 9147419 (Version 5)
Quarter: 2013Q3

REPORT INFORMATION
  Report Type: Report from Study
  Country: JP (occurrence: JP)
  Receive Date: 20130307
  Receipt Date: 20130924
  Transmission Date: 20140515
  Serious: Yes (Hospitalization)
  Sender: FDA-Public Use
  Company Number: JP-GLAXOSMITHKLINE-B0872741A

PATIENT
  Age: 60 Year
  Sex: Female
  Weight: 64 kg

DRUGS (5)
  1. VOTRIENT 200MG [Suspect]
     Indication: SARCOMA UTERUS
     Dosage: 800MG PER DAY
     Route: 048
     Dates: start: 20130227, end: 20130228
  2. VOTRIENT 200MG [Suspect]
     Indication: SARCOMA UTERUS
     Dosage: 600MG PER DAY
     Route: 048
     Dates: start: 20130314, end: 20130318
  3. LIPOVAS [Concomitant]
     Indication: HYPERLIPIDAEMIA
     Dosage: 5MG PER DAY
     Route: 048
     Dates: start: 20101022, end: 20130324
  4. LOXONIN [Concomitant]
     Indication: BACK PAIN
     Route: 065
  5. MUCOSTA [Concomitant]
     Route: 065

REACTIONS (3)
  - Abdominal pain [Recovering/Resolving]
  - Intra-abdominal haemorrhage [Not Recovered/Not Resolved]
  - Nausea [Recovering/Resolving]
